FAERS Safety Report 14165306 (Version 3)
Quarter: 2018Q2

REPORT INFORMATION
  Report Type: Spontaneous
  Country: US (occurrence: US)
  Receive Date: 20171107
  Receipt Date: 20180524
  Transmission Date: 20180711
  Serious: Yes (Hospitalization, Other)
  Sender: FDA-Public Use
  Company Number: US-GLAXOSMITHKLINE-US2017169236

PATIENT
  Age: 67 Year
  Sex: Female

DRUGS (16)
  1. BREO ELLIPTA [Suspect]
     Active Substance: FLUTICASONE FUROATE\VILANTEROL TRIFENATATE
     Indication: CHRONIC OBSTRUCTIVE PULMONARY DISEASE
     Dosage: 1 PUFF(S), 1D
     Route: 055
     Dates: start: 2016, end: 201805
  2. COQ10 ORAL (UBIQUINOL) [Concomitant]
  3. SENOKOT [Concomitant]
     Active Substance: SENNOSIDES
  4. ALPRAZOLAM. [Concomitant]
     Active Substance: ALPRAZOLAM
  5. MIRALAX [Concomitant]
     Active Substance: POLYETHYLENE GLYCOL 3350
  6. FISH OIL [Concomitant]
     Active Substance: FISH OIL
  7. ANORO ELLIPTA [Suspect]
     Active Substance: UMECLIDINIUM BROMIDE\VILANTEROL TRIFENATATE
     Indication: CHRONIC OBSTRUCTIVE PULMONARY DISEASE
     Dosage: 1 PUFF(S), 1D
     Route: 055
     Dates: start: 20180508
  8. VENLAFAXINE HYDROCHLORIDE. [Concomitant]
     Active Substance: VENLAFAXINE HYDROCHLORIDE
  9. BORAGE [Concomitant]
  10. ALBUTEROL. [Concomitant]
     Active Substance: ALBUTEROL
  11. MORPHINE [Concomitant]
     Active Substance: MORPHINE
  12. CITRACAL [Concomitant]
     Active Substance: CALCIUM CITRATE
  13. LISINOPRIL DIHYDRATE [Concomitant]
     Active Substance: LISINOPRIL
  14. ZZZQUIL NIGHTTIME SLEEP-AID [Concomitant]
     Active Substance: DIPHENHYDRAMINE HYDROCHLORIDE
  15. MELATONIN [Concomitant]
     Active Substance: MELATONIN
  16. MOTRIN [Concomitant]
     Active Substance: IBUPROFEN

REACTIONS (16)
  - Pneumonia [Recovered/Resolved]
  - Malaise [Unknown]
  - Sepsis [Recovered/Resolved]
  - Mental status changes [Recovered/Resolved]
  - Nasopharyngitis [Recovered/Resolved]
  - Dysphonia [Not Recovered/Not Resolved]
  - Lung disorder [Unknown]
  - Laryngitis [Unknown]
  - Ill-defined disorder [Unknown]
  - Condition aggravated [Recovered/Resolved]
  - Decreased appetite [Recovered/Resolved]
  - Fatigue [Recovered/Resolved]
  - Renal failure [Recovered/Resolved]
  - Pancreatitis [Recovered/Resolved]
  - Rehabilitation therapy [Recovered/Resolved]
  - Drug effect incomplete [Unknown]

NARRATIVE: CASE EVENT DATE: 2017
